FAERS Safety Report 5839339-1 (Version None)
Quarter: 2008Q3

REPORT INFORMATION
  Report Type: 
  Country: None (occurrence: None)
  Receive Date: 20080808
  Receipt Date: 20080716
  Transmission Date: 20090109
  Serious: Yes (Other)
  Sender: FDA-Public Use
  Company Number: JP-PFIZER INC-2008065526

PATIENT
  Age: 77 Year
  Sex: Female

DRUGS (2)
  1. GABAPEN [Suspect]
     Indication: PAIN
     Dosage: DAILY DOSE:1800MG
     Route: 048
  2. AMITRIPTYLINE HCL [Concomitant]

REACTIONS (2)
  - DRUG INEFFECTIVE [None]
  - PAIN [None]
